FAERS Safety Report 4873501-X (Version None)
Quarter: 2005Q4

REPORT INFORMATION
  Report Type: 
  Country: None (occurrence: None)
  Receive Date: 20051201
  Receipt Date: 20050822
  Transmission Date: 20060501
  Serious: No
  Sender: FDA-Public Use
  Company Number: 2005PV001419

PATIENT
  Age: 37 Year
  Sex: Female

DRUGS (8)
  1. BYETTA [Suspect]
     Indication: DIABETES MELLITUS NON-INSULIN-DEPENDENT
     Dosage: SEE IMAGE
     Route: 058
     Dates: start: 20050718, end: 20050817
  2. BYETTA [Suspect]
     Indication: DIABETES MELLITUS NON-INSULIN-DEPENDENT
     Dosage: SEE IMAGE
     Route: 058
     Dates: start: 20050818
  3. METFORMIN [Concomitant]
  4. ZOLOFT [Concomitant]
  5. WELLBUTRIN [Concomitant]
  6. TRIGLIDE [Concomitant]
  7. PRAVACHOL [Concomitant]
  8. L-ARGININE [Concomitant]

REACTIONS (2)
  - HYPERHIDROSIS [None]
  - WEIGHT DECREASED [None]
